FAERS Safety Report 6822170-8 (Version None)
Quarter: 2010Q3

REPORT INFORMATION
  Report Type: 
  Country: None (occurrence: None)
  Receive Date: 20100702
  Receipt Date: 20100628
  Transmission Date: 20110219
  Serious: Yes (Death, Hospitalization)
  Sender: FDA-Public Use
  Company Number: 2010SP036097

PATIENT
  Age: 48 Year
  Sex: Male

DRUGS (5)
  1. PEGINTERFERON ALFA-2B [Suspect]
     Indication: HEPATITIS C
     Dosage: 120 MCG; QW; SC
     Route: 058
     Dates: start: 20090720, end: 20100104
  2. RIBAVIRIN [Suspect]
     Indication: HEPATITIS C
     Dosage: 800 MCG; QD; PO
     Route: 048
     Dates: start: 20090720, end: 20100104
  3. ELTROMBOPAG (ELTROMBOPAG) [Suspect]
     Indication: THROMBOCYTOPENIA
     Dosage: PO; 75 MG; PO
     Route: 048
     Dates: start: 20090706, end: 20090719
  4. ELTROMBOPAG (ELTROMBOPAG) [Suspect]
     Indication: THROMBOCYTOPENIA
     Dosage: PO; 75 MG; PO
     Route: 048
     Dates: start: 20090604
  5. BLINDED ELTROMBOPAG (ELTROMBOPAG) [Suspect]
     Indication: THROMBOCYTOPENIA
     Dosage: 75 MGL QD; PO
     Route: 048
     Dates: start: 20090720, end: 20100104

REACTIONS (5)
  - ABDOMINAL DISTENSION [None]
  - GINGIVAL BLEEDING [None]
  - HAEMOGLOBIN DECREASED [None]
  - LEUKOPENIA [None]
  - THROMBOCYTOPENIA [None]
